FAERS Safety Report 5123014-5 (Version None)
Quarter: 2006Q4

REPORT INFORMATION
  Report Type: 
  Country: None (occurrence: None)
  Receive Date: 20061005
  Receipt Date: 20060919
  Transmission Date: 20070319
  Serious: Yes (Hospitalization, Other)
  Sender: FDA-Public Use
  Company Number: US200604004205

PATIENT
  Age: 87 Year
  Sex: Female

DRUGS (4)
  1. FORTEO [Suspect]
     Indication: OSTEOPOROSIS
     Dates: start: 20050301
  2. FORTEO [Suspect]
  3. FORTEO [Suspect]
  4. FORTEO [Concomitant]

REACTIONS (10)
  - CONDITION AGGRAVATED [None]
  - CONSTIPATION [None]
  - DRUG DOSE OMISSION [None]
  - FALL [None]
  - HAEMORRHAGE [None]
  - HIP ARTHROPLASTY [None]
  - MOBILITY DECREASED [None]
  - MUSCULOSKELETAL DISCOMFORT [None]
  - PHARMACEUTICAL PRODUCT COMPLAINT [None]
  - WRIST FRACTURE [None]
